FAERS Safety Report 21296649 (Version 1)
Quarter: 2022Q3

REPORT INFORMATION
  Report Type: Spontaneous
  Country: US (occurrence: None)
  Receive Date: 20220902
  Receipt Date: 20220902
  Transmission Date: 20221026
  Serious: No
  Sender: FDA-Public Use
  Company Number: None

PATIENT
  Age: 50 Year
  Sex: Male

DRUGS (1)
  1. TREMFYA [Suspect]
     Active Substance: GUSELKUMAB
     Indication: Psoriasis
     Dosage: OTHER FREQUENCY : OTHER 8 WEEKS;?
     Route: 058
     Dates: start: 202003

REACTIONS (4)
  - Device malfunction [None]
  - Incorrect dose administered by device [None]
  - Device mechanical issue [None]
  - Device defective [None]

NARRATIVE: CASE EVENT DATE: 20220830
